FAERS Safety Report 15924819 (Version 1)
Quarter: 2019Q1

REPORT INFORMATION
  Report Type: Spontaneous
  Country: US (occurrence: US)
  Receive Date: 20190204
  Receipt Date: 20190204
  Transmission Date: 20190417
  Serious: No
  Sender: FDA-Public Use
  Company Number: None

PATIENT

DRUGS (1)
  1. HUMULIN 70/30 [Suspect]
     Active Substance: INSULIN HUMAN
     Dosage: 20 UNITS
     Route: 058

REACTIONS (2)
  - Device malfunction [None]
  - Device leakage [None]

NARRATIVE: CASE EVENT DATE: 20181219
